FAERS Safety Report 12572813 (Version 1)
Quarter: 2016Q3

REPORT INFORMATION
  Report Type: Spontaneous
  Country: HN (occurrence: HN)
  Receive Date: 20160720
  Receipt Date: 20160720
  Transmission Date: 20161109
  Serious: Yes (Other)
  Sender: FDA-Public Use
  Company Number: HN-BAXTER-2016BAX037791

PATIENT
  Age: 50 Year
  Sex: Female

DRUGS (7)
  1. RANITIDINE. [Concomitant]
     Active Substance: RANITIDINE
     Indication: GASTRITIS
     Dosage: DILUTED IN 10 CC SODIUM CHLORIDE
     Route: 042
     Dates: start: 20160701, end: 20160701
  2. METHOCLOPRAMIDE [Concomitant]
     Indication: VOMITING
     Dosage: DILUTED IN 20 CC SODIUM CHLORIDE
     Route: 042
     Dates: start: 20160701, end: 20160701
  3. CEFTRIAXONE. [Concomitant]
     Active Substance: CEFTRIAXONE
     Indication: DIARRHOEA
     Route: 042
     Dates: start: 20160701, end: 20160701
  4. SODIUM CHLORIDE. [Concomitant]
     Active Substance: SODIUM CHLORIDE
     Indication: MEDICATION DILUTION
     Dosage: 10 CC
     Route: 042
     Dates: start: 20160701, end: 20160701
  5. SODIUM CHLORIDE. [Concomitant]
     Active Substance: SODIUM CHLORIDE
     Route: 042
     Dates: start: 20160701, end: 20160701
  6. LACTATED RINGERS [Suspect]
     Active Substance: CALCIUM CHLORIDE\POTASSIUM CHLORIDE\SODIUM CHLORIDE\SODIUM LACTATE
     Indication: FLUID REPLACEMENT
     Dosage: APPROXIMATELY ABOVE 200 ML
     Route: 042
     Dates: start: 20160701, end: 20160701
  7. SODIUM CHLORIDE. [Concomitant]
     Active Substance: SODIUM CHLORIDE
     Dosage: 20 CC
     Route: 042
     Dates: start: 20160701, end: 20160701

REACTIONS (4)
  - Cyanosis [Recovered/Resolved]
  - Tremor [Recovered/Resolved]
  - Chills [Recovered/Resolved]
  - Cyanosis [None]

NARRATIVE: CASE EVENT DATE: 20160701
